FAERS Safety Report 7647357-6 (Version None)
Quarter: 2011Q3

REPORT INFORMATION
  Report Type: 
  Country: None (occurrence: None)
  Receive Date: 20110801
  Receipt Date: 20110727
  Transmission Date: 20111222
  Serious: Yes (Death, Other)
  Sender: FDA-Public Use
  Company Number: CN-ROCHE-792708

PATIENT

DRUGS (1)
  1. ROCEPHIN [Suspect]
     Indication: POSTOPERATIVE FEVER
     Route: 042
     Dates: start: 20110719

REACTIONS (4)
  - MYOCARDIAL INFARCTION [None]
  - CHILLS [None]
  - MYOCARDIAL RUPTURE [None]
  - MUSCLE TWITCHING [None]
